FAERS Safety Report 15560289 (Version 1)
Quarter: 2018Q4

REPORT INFORMATION
  Report Type: Spontaneous
  Country: JP (occurrence: JP)
  Receive Date: 20181029
  Receipt Date: 20181029
  Transmission Date: 20190205
  Serious: Yes (Other)
  Sender: FDA-Public Use
  Company Number: PHJP2012JP007639

PATIENT
  Age: 79 Year
  Sex: Female

DRUGS (1)
  1. EXELON PATCH [Suspect]
     Active Substance: RIVASTIGMINE
     Indication: DEMENTIA ALZHEIMER^S TYPE
     Dosage: PATCH 2.5 (CM2), QD
     Route: 062
     Dates: start: 20120723, end: 20120801

REACTIONS (1)
  - Bedridden [Recovered/Resolved]

NARRATIVE: CASE EVENT DATE: 20120727
